FAERS Safety Report 7678700-X (Version None)
Quarter: 2011Q3

REPORT INFORMATION
  Report Type: 
  Country: None (occurrence: None)
  Receive Date: 20110811
  Receipt Date: 20110808
  Transmission Date: 20111222
  Serious: Yes (Hospitalization)
  Sender: FDA-Public Use
  Company Number: US-BAYER-2011-070609

PATIENT
  Sex: Female

DRUGS (2)
  1. DROSPIRENONE AND ETHINYL ESTRADIOL [Suspect]
     Dosage: UNK
     Dates: start: 20080728, end: 20081025
  2. YASMIN [Suspect]
     Dosage: UNK
     Dates: start: 20071019, end: 20080701

REACTIONS (5)
  - DEEP VEIN THROMBOSIS [None]
  - PAIN [None]
  - ANXIETY [None]
  - INJURY [None]
  - EMOTIONAL DISTRESS [None]
